FAERS Safety Report 15041225 (Version 1)
Quarter: 2018Q2

REPORT INFORMATION
  Report Type: Report from Study
  Country: CN (occurrence: CN)
  Receive Date: 20180621
  Receipt Date: 20180621
  Transmission Date: 20180711
  Serious: Yes (Other)
  Sender: FDA-Public Use
  Company Number: CN-ROCHE-2138847

PATIENT

DRUGS (1)
  1. CAPECITABINE. [Suspect]
     Active Substance: CAPECITABINE
     Indication: RECTAL CANCER RECURRENT
     Dosage: CHEMOTHERAPY FOR 2 CYCLES, 5 DAYS AS 1 CYCLE
     Route: 048

REACTIONS (5)
  - Diarrhoea [Unknown]
  - Gastrointestinal disorder [Unknown]
  - Neuropathy peripheral [Unknown]
  - Renal impairment [Unknown]
  - Hepatic function abnormal [Unknown]
